FAERS Safety Report 4806941-5 (Version None)
Quarter: 2005Q4

REPORT INFORMATION
  Report Type: 
  Country: None (occurrence: None)
  Receive Date: 20051019
  Receipt Date: 20051003
  Transmission Date: 20060501
  Serious: Yes (Other)
  Sender: FDA-Public Use
  Company Number: EWC050946019

PATIENT
  Age: 50 Year
  Sex: Male

DRUGS (2)
  1. YENTREVE (DULOXETINE HYDROCHLORIDE) [Suspect]
     Indication: URINARY INCONTINENCE
     Dosage: 40 MG DAY
     Dates: start: 20050904
  2. AMOXICILLIN [Concomitant]

REACTIONS (3)
  - DEAFNESS [None]
  - HYPERHIDROSIS [None]
  - NAUSEA [None]
